FAERS Safety Report 21854732 (Version 1)
Quarter: 2023Q1

REPORT INFORMATION
  Report Type: Spontaneous
  Country: US (occurrence: US)
  Receive Date: 20230112
  Receipt Date: 20230112
  Transmission Date: 20230417
  Serious: No
  Sender: FDA-Public Use
  Company Number: US-BAXTER-2023BAX010215

PATIENT
  Age: 66 Year
  Sex: Male
  Weight: 73.152 kg

DRUGS (2)
  1. EXTRANEAL [Suspect]
     Active Substance: CALCIUM CHLORIDE\ICODEXTRIN\MAGNESIUM CHLORIDE\SODIUM CHLORIDE\SODIUM LACTATE
     Indication: Peritoneal dialysis
     Dosage: 1.2 L, 1 BAG PER DAY
     Route: 033
     Dates: start: 20221223, end: 20221228
  2. TORSEMIDE [Concomitant]
     Active Substance: TORSEMIDE
     Indication: Product used for unknown indication
     Dosage: 20 MG, 3 TABLETS DAILY
     Route: 048

REACTIONS (4)
  - Drug hypersensitivity [Unknown]
  - Erythema [Recovering/Resolving]
  - Rash [Recovering/Resolving]
  - Skin exfoliation [Not Recovered/Not Resolved]

NARRATIVE: CASE EVENT DATE: 20221228
